FAERS Safety Report 9516359 (Version 1)
Quarter: 2013Q3

REPORT INFORMATION
  Report Type: Spontaneous
  Country: AU (occurrence: None)
  Receive Date: 20130909
  Receipt Date: 20130909
  Transmission Date: 20140515
  Serious: Yes (Life-Threatening, Hospitalization, Other)
  Sender: FDA-Public Use
  Company Number: AUR-APL-2013-07410

PATIENT
  Age: 30 Year
  Sex: Female

DRUGS (5)
  1. QUETIAPINE [Suspect]
     Indication: PRODUCT USED FOR UNKNOWN INDICATION
  2. ZUCLOPENTHIXOL [Suspect]
     Indication: PRODUCT USED FOR UNKNOWN INDICATION
  3. FOLIC ACID [Concomitant]
  4. LABETALOL HYDROCHLORIDE [Concomitant]
  5. LITHIUM CARBONATE [Concomitant]

REACTIONS (3)
  - Pre-eclampsia [None]
  - Maternal exposure during pregnancy [None]
  - Caesarean section [None]
